FAERS Safety Report 8200444-6 (Version None)
Quarter: 2012Q1

REPORT INFORMATION
  Report Type: 
  Country: None (occurrence: None)
  Receive Date: 20120309
  Receipt Date: 20120309
  Transmission Date: 20120608
  Serious: Yes (Hospitalization)
  Sender: FDA-Public Use
  Company Number: None

PATIENT
  Age: 19 Month
  Sex: Male
  Weight: 12.8 kg

DRUGS (1)
  1. EX-LAX REGULAR CHOCOLATE STRENGTH 1.5 CHEWS NOVARTIS [Suspect]
     Indication: PERINEAL INDURATION
     Dosage: 1.5 TABLETS PRN PO
     Route: 048
     Dates: start: 20120221

REACTIONS (6)
  - BLISTER [None]
  - ACCIDENTAL EXPOSURE [None]
  - SURGERY [None]
  - THERMAL BURN [None]
  - PERINEAL ERYTHEMA [None]
  - DEBRIDEMENT [None]
